FAERS Safety Report 20157749 (Version 1)
Quarter: 2021Q4

REPORT INFORMATION
  Report Type: Spontaneous
  Country: JP (occurrence: JP)
  Receive Date: 20211207
  Receipt Date: 20211207
  Transmission Date: 20220303
  Serious: Yes (Death, Other)
  Sender: FDA-Public Use
  Company Number: JP-SA-SAC20211207000169

PATIENT
  Age: 67 Year
  Sex: Female

DRUGS (3)
  1. OXALIPLATIN [Suspect]
     Active Substance: OXALIPLATIN
     Indication: Anal cancer
     Dosage: UNK
     Route: 041
     Dates: start: 20211014, end: 20211125
  2. CAPECITABINE [Concomitant]
     Active Substance: CAPECITABINE
     Dosage: UNK
     Dates: start: 20211014, end: 20211125
  3. BEVACIZUMAB [Concomitant]
     Active Substance: BEVACIZUMAB
     Dosage: UNK
     Dates: start: 20211014, end: 20211125

REACTIONS (1)
  - Cardiac death [Fatal]

NARRATIVE: CASE EVENT DATE: 20211125
